FAERS Safety Report 24953846 (Version 2)
Quarter: 2025Q1

REPORT INFORMATION
  Report Type: Spontaneous
  Country: US (occurrence: US)
  Receive Date: 20250211
  Receipt Date: 20250331
  Transmission Date: 20250409
  Serious: No
  Sender: GILEAD
  Company Number: US-GILEAD-2025-0701833

PATIENT
  Sex: Female

DRUGS (1)
  1. ATRIPLA [Suspect]
     Active Substance: EFAVIRENZ\EMTRICITABINE\TENOFOVIR DISOPROXIL FUMARATE
     Indication: HIV infection
     Route: 048
     Dates: start: 20120101, end: 20170101

REACTIONS (1)
  - Bone density decreased [Not Recovered/Not Resolved]

NARRATIVE: CASE EVENT DATE: 20200101
